FAERS Safety Report 4812941-1 (Version None)
Quarter: 2005Q4

REPORT INFORMATION
  Report Type: 
  Country: None (occurrence: None)
  Receive Date: 20051028
  Receipt Date: 20050519
  Transmission Date: 20060501
  Serious: No
  Sender: FDA-Public Use
  Company Number: US-GLAXOSMITHKLINE-A0559333A

PATIENT
  Age: 86 Year
  Sex: Female

DRUGS (6)
  1. ADVAIR DISKUS 100/50 [Suspect]
     Indication: ASTHMA
     Route: 055
     Dates: start: 20050516
  2. SINGULAIR [Concomitant]
  3. DIAZIDE [Concomitant]
  4. INDERAL [Concomitant]
  5. VALIUM [Concomitant]
  6. ASPIRIN [Concomitant]

REACTIONS (1)
  - NAUSEA [None]
